FAERS Safety Report 4945152-X (Version None)
Quarter: 2006Q1

REPORT INFORMATION
  Report Type: 
  Country: None (occurrence: None)
  Receive Date: 20060117
  Receipt Date: 20041202
  Transmission Date: 20060701
  Serious: Yes (Life-Threatening, Hospitalization, Disabling)
  Sender: FDA-Public Use
  Company Number: A03200403722

PATIENT
  Age: 69 Year
  Sex: Male
  Weight: 88.4514 kg

DRUGS (9)
  1. PLAVIX [Suspect]
     Indication: ANGIOPLASTY
     Dosage: 75 MG QD - ORAL
     Route: 048
     Dates: start: 20031001, end: 20040501
  2. PLAVIX [Suspect]
     Indication: CORONARY ARTERY DISEASE
     Dosage: 75 MG QD - ORAL
     Route: 048
     Dates: start: 20031001, end: 20040501
  3. PLAVIX [Suspect]
     Indication: STENT PLACEMENT
     Dosage: 75 MG QD - ORAL
     Route: 048
     Dates: start: 20031001, end: 20040501
  4. DIGITALIS [Concomitant]
  5. ACETYLSALICYLIC ACID SRT [Concomitant]
  6. INSULIN [Concomitant]
  7. BLOOD PRESSURE LOWERING MEDICATION [Concomitant]
  8. CHOLESTEROL [Concomitant]
  9. WARFARIN SODIUM [Concomitant]

REACTIONS (1)
  - HAEMORRHAGIC STROKE [None]
